FAERS Safety Report 14982571 (Version 2)
Quarter: 2018Q2

REPORT INFORMATION
  Report Type: Spontaneous
  Country: US (occurrence: US)
  Receive Date: 20180607
  Receipt Date: 20180620
  Transmission Date: 20180711
  Serious: No
  Sender: FDA-Public Use
  Company Number: US-PFIZER INC-2018231989

PATIENT
  Age: 72 Year
  Sex: Female

DRUGS (13)
  1. ANORO ELLIPTA [Concomitant]
     Active Substance: UMECLIDINIUM BROMIDE\VILANTEROL TRIFENATATE
     Dosage: UNK
  2. ASPIRIN. [Concomitant]
     Active Substance: ASPIRIN
     Dosage: UNK
  3. HYDROCHLOROTHIAZIDE. [Concomitant]
     Active Substance: HYDROCHLOROTHIAZIDE
     Dosage: 25 MG, UNK
  4. PRAVASTATIN. [Concomitant]
     Active Substance: PRAVASTATIN
     Dosage: 20 MG, UNK
  5. IBRANCE [Suspect]
     Active Substance: PALBOCICLIB
     Dosage: 100 MG, CYCLIC (ONCE DAILY WITH FOOD FOR 21 DAYS, THEN 7 DAYS OFF)
     Route: 048
     Dates: start: 20180312
  6. METHYLPREDNISOLONE. [Concomitant]
     Active Substance: METHYLPREDNISOLONE
     Dosage: 4 MG, UNK
  7. VERAPAMIL HCL [Concomitant]
     Active Substance: VERAPAMIL HYDROCHLORIDE
     Dosage: 120 MG, UNK
  8. ASMANEX [Concomitant]
     Active Substance: MOMETASONE FUROATE
     Dosage: UNK
  9. POTASSIUM CHLORIDE. [Concomitant]
     Active Substance: POTASSIUM CHLORIDE
     Dosage: UNK (40 MEQ/10)
  10. MUCINEX [Concomitant]
     Active Substance: GUAIFENESIN
     Dosage: 600 MG, 1X/DAY
  11. CALCIUM [Concomitant]
     Active Substance: CALCIUM
     Dosage: 600 MG, UNK
  12. TOVIAZ [Concomitant]
     Active Substance: FESOTERODINE FUMARATE
     Dosage: 8 MG, DAILY
  13. XARELTO [Concomitant]
     Active Substance: RIVAROXABAN
     Dosage: 20 MG, UNK

REACTIONS (2)
  - Full blood count decreased [Recovered/Resolved]
  - Feeling abnormal [Recovered/Resolved]

NARRATIVE: CASE EVENT DATE: 2018
